FAERS Safety Report 12282162 (Version 1)
Quarter: 2016Q2

REPORT INFORMATION
  Report Type: Spontaneous
  Country: None (occurrence: None)
  Receive Date: 20160418
  Receipt Date: 20160418
  Transmission Date: 20160815
  Serious: Yes (Hospitalization)
  Sender: FDA-Public Use
  Company Number: None

PATIENT
  Age: 59 Year
  Sex: Female
  Weight: 65 kg

DRUGS (5)
  1. DIAZEPAM. [Concomitant]
     Active Substance: DIAZEPAM
  2. ACETAMINOPHEN. [Concomitant]
     Active Substance: ACETAMINOPHEN
  3. OXYCODONE [Concomitant]
     Active Substance: OXYCODONE
  4. VANCOMYCIN, 1000MG/250ML [Suspect]
     Active Substance: VANCOMYCIN
     Indication: OSTEOMYELITIS
     Dosage: INTRAVENOUS (NOT OTHERWISE SPECIFIED)
     Route: 042
     Dates: start: 20160317, end: 20160409
  5. DOCUSATE [Concomitant]
     Active Substance: DOCUSATE

REACTIONS (8)
  - Drug reaction with eosinophilia and systemic symptoms [None]
  - Rash [None]
  - Pyrexia [None]
  - Eosinophilia [None]
  - Transaminases increased [None]
  - Drug hypersensitivity [None]
  - Lymphadenopathy [None]
  - Face oedema [None]

NARRATIVE: CASE EVENT DATE: 20160317
